FAERS Safety Report 4329990-2 (Version None)
Quarter: 2004Q1

REPORT INFORMATION
  Report Type: 
  Country: None (occurrence: None)
  Receive Date: 20040329
  Receipt Date: 20041210
  Transmission Date: 20041129
  Serious: No
  Sender: FDA-Public Use
  Company Number: 03P-163-0237377-00

PATIENT
  Age: 70 Year
  Sex: Female

DRUGS (6)
  1. HUMIRA [Suspect]
     Indication: RHEUMATOID ARTHRITIS
     Dosage: 40 MG, 1 IN 2 WK, SUBCUTANEOUS
     Route: 058
     Dates: start: 20030926
  2. HYDROXYCHLOROQUINE PHOSPHATE [Concomitant]
  3. NAPROXEN [Concomitant]
  4. CALCIUM CITRATE [Concomitant]
  5. FISH OIL [Concomitant]
  6. ACETAMINOPHEN [Concomitant]

REACTIONS (4)
  - EYE DISCHARGE [None]
  - INFECTION [None]
  - MASS [None]
  - PAROTITIS [None]
